FAERS Safety Report 17546345 (Version 1)
Quarter: 2020Q1

REPORT INFORMATION
  Report Type: Spontaneous
  Country: CN (occurrence: CN)
  Receive Date: 20200316
  Receipt Date: 20200316
  Transmission Date: 20200409
  Serious: Yes (Hospitalization, Other)
  Sender: FDA-Public Use
  Company Number: CN-ASTRAZENECA-2020SE36495

PATIENT
  Age: 26662 Day
  Sex: Male
  Weight: 55 kg

DRUGS (4)
  1. TIROFIBAN HYDROCHLORIDE. [Suspect]
     Active Substance: TIROFIBAN HYDROCHLORIDE
     Indication: THROMBOSIS
     Route: 065
     Dates: start: 20200224, end: 20200224
  2. TICAGRELOR. [Suspect]
     Active Substance: TICAGRELOR
     Indication: THROMBOSIS
     Route: 048
     Dates: start: 20200224, end: 20200306
  3. LIMAIQING (HEPARIN CALCIUM) [Suspect]
     Active Substance: HEPARIN CALCIUM
     Indication: THROMBOSIS
     Dosage: 5000 INTERNATIONAL ANTI XA UNIT+ 0.9% SODIUM CHLORIDE INJECTION 1ML Q12H INJECTED
     Route: 058
     Dates: start: 20200224, end: 20200226
  4. BAYASPIRIN [Suspect]
     Active Substance: ASPIRIN
     Indication: THROMBOSIS
     Route: 048
     Dates: start: 20200224, end: 20200229

REACTIONS (9)
  - Bladder spasm [Unknown]
  - Urinary tract injury [Unknown]
  - Respiratory tract haemorrhage [Recovering/Resolving]
  - Catheter site haemorrhage [Recovering/Resolving]
  - Pneumonitis [Unknown]
  - Benign prostatic hyperplasia [Unknown]
  - Urinary bladder haemorrhage [Unknown]
  - Haemoptysis [Not Recovered/Not Resolved]
  - Haemorrhage urinary tract [Recovering/Resolving]

NARRATIVE: CASE EVENT DATE: 20200225
